FAERS Safety Report 6194253-X (Version None)
Quarter: 2009Q2

REPORT INFORMATION
  Report Type: 
  Country: None (occurrence: None)
  Receive Date: 20090513
  Receipt Date: 20090427
  Transmission Date: 20091009
  Serious: Yes (Death)
  Sender: FDA-Public Use
  Company Number: 000752

PATIENT

DRUGS (1)
  1. OMEPRAZOLE [Suspect]
     Dosage: (10 MG, 10MG DAILY THROUGHOUT TRANSPLACENTAL)
     Route: 064

REACTIONS (4)
  - ABORTION INDUCED [None]
  - EXOMPHALOS [None]
  - MATERNAL DRUGS AFFECTING FOETUS [None]
  - MULTIPLE CONGENITAL ABNORMALITIES [None]
